FAERS Safety Report 10194224 (Version 1)
Quarter: 2014Q2

REPORT INFORMATION
  Report Type: Spontaneous
  Country: TW (occurrence: TW)
  Receive Date: 20140525
  Receipt Date: 20140525
  Transmission Date: 20141212
  Serious: Yes (Other)
  Sender: FDA-Public Use
  Company Number: PHHY2014TW058802

PATIENT
  Age: 55 Year
  Sex: Male

DRUGS (1)
  1. METHOTREXATE [Suspect]
     Indication: PSORIASIS
     Dosage: 2.5 MG, PER DAY

REACTIONS (17)
  - Oedema peripheral [Unknown]
  - Dysphagia [Unknown]
  - Skin necrosis [Unknown]
  - Rash [Unknown]
  - Mucosal ulceration [Unknown]
  - Skin plaque [Unknown]
  - Skin ulcer [Unknown]
  - Erythema [Unknown]
  - Skin exfoliation [Unknown]
  - Pyrexia [Unknown]
  - Urine output decreased [Unknown]
  - Liver disorder [Unknown]
  - Hyperbilirubinaemia [Unknown]
  - Pancytopenia [Unknown]
  - Skin lesion [Unknown]
  - Skin oedema [Unknown]
  - Overdose [Unknown]
